FAERS Safety Report 5430513-5 (Version None)
Quarter: 2007Q3

REPORT INFORMATION
  Report Type: 
  Country: None (occurrence: None)
  Receive Date: 20070830
  Receipt Date: 20070822
  Transmission Date: 20080115
  Serious: Yes (Other)
  Sender: FDA-Public Use
  Company Number: JP-AVENTIS-200712009JP

PATIENT
  Sex: Male

DRUGS (1)
  1. LASIX [Suspect]
     Route: 042

REACTIONS (1)
  - BILE DUCT STONE [None]
